FAERS Safety Report 5538335-1 (Version None)
Quarter: 2007Q4

REPORT INFORMATION
  Report Type: 
  Country: None (occurrence: None)
  Receive Date: 20071205
  Receipt Date: 20071120
  Transmission Date: 20080405
  Serious: Yes (Other)
  Sender: FDA-Public Use
  Company Number: 07-427

PATIENT
  Age: 67 Year
  Sex: Female
  Weight: 95.2554 kg

DRUGS (9)
  1. ALEVE LIQUID GELS, 220 MG, BAYER  HEALTHCAE [Suspect]
     Indication: BACK PAIN
     Dosage: 220 MG, DAILY, ORAL
     Route: 048
     Dates: start: 20071001
  2. ALEVE LIQUID GELS, 220 MG, BAYER  HEALTHCAE [Suspect]
     Indication: PAIN
     Dosage: 220 MG, DAILY, ORAL
     Route: 048
     Dates: start: 20071001
  3. SYNTHROID [Concomitant]
  4. GLIPIZIDE [Concomitant]
  5. ATENOLOL [Concomitant]
  6. METFORMIN HCL [Concomitant]
  7. VITAMIN E [Concomitant]
  8. ASPIRIN [Concomitant]
  9. FISH OIL [Concomitant]

REACTIONS (1)
  - HALLUCINATION, AUDITORY [None]
